FAERS Safety Report 4352324-4 (Version None)
Quarter: 2004Q2

REPORT INFORMATION
  Report Type: 
  Country: None (occurrence: None)
  Receive Date: 20040415
  Receipt Date: 20030407
  Transmission Date: 20050107
  Serious: No
  Sender: FDA-Public Use
  Company Number: 2003UW04485

PATIENT
  Sex: Female

DRUGS (2)
  1. ATENOLOL [Suspect]
  2. XANAX [Concomitant]

REACTIONS (5)
  - EPISTAXIS [None]
  - FLUSHING [None]
  - HYPERTENSION [None]
  - MULTIPLE ALLERGIES [None]
  - PALPITATIONS [None]
